FAERS Safety Report 22201779 (Version 1)
Quarter: 2023Q2

REPORT INFORMATION
  Report Type: Spontaneous
  Country: US (occurrence: US)
  Receive Date: 20230412
  Receipt Date: 20230412
  Transmission Date: 20230721
  Serious: No
  Sender: FDA-Public Use
  Company Number: US-SANOFI-01566187

PATIENT

DRUGS (1)
  1. DUPIXENT [Suspect]
     Active Substance: DUPILUMAB
     Indication: Asthma
     Dosage: UNK

REACTIONS (9)
  - Injection site urticaria [Recovered/Resolved]
  - Injection site rash [Recovered/Resolved]
  - Injection site papule [Recovered/Resolved]
  - Influenza like illness [Recovering/Resolving]
  - Headache [Unknown]
  - Chills [Recovering/Resolving]
  - Myalgia [Recovering/Resolving]
  - Fatigue [Recovering/Resolving]
  - Migraine [Unknown]
